FAERS Safety Report 14574509 (Version 1)
Quarter: 2018Q1

REPORT INFORMATION
  Report Type: Spontaneous
  Country: US (occurrence: US)
  Receive Date: 20180224
  Receipt Date: 20180224
  Transmission Date: 20180509
  Serious: Yes (Hospitalization)
  Sender: FDA-Public Use
  Company Number: None

PATIENT
  Age: 12 Week
  Sex: Male
  Weight: 3.2 kg

DRUGS (1)
  1. ERYTHROMYCIN ETHYL SUCCINATE SUSPESION [Suspect]
     Active Substance: ERYTHROMYCIN ETHYLSUCCINATE
     Indication: CONJUNCTIVITIS CHLAMYDIAL
     Route: 048
     Dates: start: 20180222, end: 20180224

REACTIONS (2)
  - Pyloric stenosis [None]
  - Pylorospasm [None]

NARRATIVE: CASE EVENT DATE: 20180224
